FAERS Safety Report 5818981-8 (Version None)
Quarter: 2008Q3

REPORT INFORMATION
  Report Type: 
  Country: None (occurrence: None)
  Receive Date: 20080721
  Receipt Date: 20080721
  Transmission Date: 20090109
  Serious: Yes (Other)
  Sender: FDA-Public Use
  Company Number: None

PATIENT
  Age: 56 Year
  Sex: Female
  Weight: 68.0396 kg

DRUGS (2)
  1. EVISTA [Suspect]
     Indication: BONE DENSITY DECREASED
     Dosage: 60 MG ONCE PER DAY PO
     Route: 048
     Dates: start: 20080409, end: 20080606
  2. SIMVASTATIN [Concomitant]

REACTIONS (3)
  - PAIN IN EXTREMITY [None]
  - PRESYNCOPE [None]
  - THROMBOSIS [None]
